FAERS Safety Report 4825082-4 (Version None)
Quarter: 2005Q4

REPORT INFORMATION
  Report Type: 
  Country: None (occurrence: None)
  Receive Date: 20051109
  Receipt Date: 20051109
  Transmission Date: 20060501
  Serious: No
  Sender: FDA-Public Use
  Company Number: None

PATIENT

DRUGS (1)
  1. MIDAZOLAM     5 MG/5ML       ABBOTT [Suspect]
     Indication: SEDATION
     Dosage: IV BOLUS
     Route: 040
     Dates: start: 20051101, end: 20051108

REACTIONS (1)
  - DRUG EFFECT DECREASED [None]
